FAERS Safety Report 22301950 (Version 2)
Quarter: 2023Q2

REPORT INFORMATION
  Report Type: Spontaneous
  Country: NL (occurrence: NL)
  Receive Date: 20230510
  Receipt Date: 20230517
  Transmission Date: 20230722
  Serious: Yes (Death, Hospitalization)
  Sender: FDA-Public Use
  Company Number: None

PATIENT
  Sex: Female
  Weight: 63.5 kg

DRUGS (10)
  1. CELLCEPT [Suspect]
     Active Substance: MYCOPHENOLATE MOFETIL
     Indication: Autoimmune encephalopathy
     Dosage: 2X PER DAY 2 PIECES
     Route: 065
     Dates: start: 20221230, end: 20230331
  2. CIPROFLOXACIN [Suspect]
     Active Substance: CIPROFLOXACIN
     Indication: Urinary tract infection
     Dosage: 1 PIECE 2X A DAY
     Route: 065
     Dates: start: 20230329, end: 20230331
  3. ACETAMINOPHEN [Concomitant]
     Active Substance: ACETAMINOPHEN
     Dosage: TABLET, 500 MG (MILLIGRAM)
  4. IBUPROFEN [Concomitant]
     Active Substance: IBUPROFEN
     Dosage: CAPSULE, 400 MG (MILLIGRAM)
     Route: 048
  5. ALPRAZOLAM [Concomitant]
     Active Substance: ALPRAZOLAM
     Dosage: TABLET, 0,25 MG (MILLIGRAM)
     Route: 048
  6. ALENDRONIC ACID [Concomitant]
     Active Substance: ALENDRONIC ACID
     Route: 048
  7. FLUOXETINE [Concomitant]
     Active Substance: FLUOXETINE HYDROCHLORIDE
     Dosage: CAPSULE, 20 MG (MILLIGRAM)
     Route: 048
  8. SUMATRIPTAN [Concomitant]
     Active Substance: SUMATRIPTAN
     Dosage: TABLET, 50 MG (MILLIGRAM)
  9. CALCIUMCARBONAT [Concomitant]
     Dosage: KAUWTABLET, 1,25 G (GRAM)/800 EENHEDEN
  10. PANTOPRAZOLE SODIUM [Concomitant]
     Active Substance: PANTOPRAZOLE SODIUM
     Dosage: MAAGSAPRESISTENTE TABLET, 40 MG (MILLIGRAM)

REACTIONS (3)
  - Completed suicide [Fatal]
  - Suicidal behaviour [Not Recovered/Not Resolved]
  - Confusional state [Unknown]
